FAERS Safety Report 4541574-X (Version None)
Quarter: 2004Q4

REPORT INFORMATION
  Report Type: 
  Country: None (occurrence: None)
  Receive Date: 20041227
  Receipt Date: 20041220
  Transmission Date: 20050328
  Serious: Yes (Hospitalization, Other)
  Sender: FDA-Public Use
  Company Number: 800176

PATIENT
  Age: 70 Year
  Sex: Male
  Weight: 66 kg

DRUGS (1)
  1. DIANEAL [Suspect]
     Indication: PERITONEAL DIALYSIS
     Dosage: INTRAPERITONEAL
     Route: 033
     Dates: end: 20041028

REACTIONS (7)
  - CATHETER RELATED INFECTION [None]
  - FUNGAL INFECTION [None]
  - INTESTINAL PERFORATION [None]
  - PERITONEAL ADHESIONS [None]
  - PERITONITIS [None]
  - PHARMACEUTICAL PRODUCT COMPLAINT [None]
  - PROCEDURAL COMPLICATION [None]
